FAERS Safety Report 8956397 (Version 1)
Quarter: 2012Q4

REPORT INFORMATION
  Report Type: 
  Country: MX (occurrence: MX)
  Receive Date: 20121210
  Receipt Date: 20121210
  Transmission Date: 20130627
  Serious: Yes (Other)
  Sender: FDA-Public Use
  Company Number: MX-JNJFOC-2004103200

PATIENT
  Age: 40 Year
  Sex: Male

DRUGS (1)
  1. OXYMETAZOLINE [Suspect]
     Indication: PRODUCT USED FOR UNKNOWN INDICATION
     Dosage: Daily Dose Text: DAILY during 1 week
     Route: 045

REACTIONS (2)
  - Cerebrovascular accident [Recovered/Resolved]
  - Subarachnoid haemorrhage [Recovered/Resolved]
